FAERS Safety Report 9691573 (Version 2)
Quarter: 2013Q4

REPORT INFORMATION
  Report Type: Report from Study
  Country: JP (occurrence: JP)
  Receive Date: 20131115
  Receipt Date: 20131115
  Transmission Date: 20140711
  Serious: Yes (Death)
  Sender: FDA-Public Use
  Company Number: JP-TAKEDA-TCI2013A04447

PATIENT
  Age: 86 Year
  Sex: Male

DRUGS (12)
  1. RAMELTEON [Suspect]
     Indication: INSOMNIA
     Route: 048
     Dates: start: 20120809, end: 20121004
  2. LENDORMIN D [Concomitant]
     Indication: INSOMNIA
     Route: 048
  3. LENDORMIN D [Concomitant]
     Route: 048
     Dates: end: 20121011
  4. OLMETEC [Concomitant]
     Route: 048
     Dates: end: 20121012
  5. BAYASPIRIN [Concomitant]
     Route: 048
     Dates: end: 20121012
  6. RENIVACE [Concomitant]
     Route: 048
     Dates: end: 20121012
  7. FLUITRAN [Concomitant]
     Route: 048
     Dates: end: 20121012
  8. AMLODIPINE [Concomitant]
     Route: 048
     Dates: end: 20121012
  9. HARNAL D [Concomitant]
     Route: 048
     Dates: end: 20121012
  10. ITOROL [Concomitant]
     Route: 048
     Dates: end: 20121012
  11. SEROQUEL [Concomitant]
     Route: 048
     Dates: end: 20121012
  12. ROZEREM TABLETS 8MG. [Suspect]
     Indication: INSOMNIA
     Route: 048
     Dates: start: 20120809, end: 20120822

REACTIONS (2)
  - Death [Fatal]
  - Marasmus [Fatal]
